FAERS Safety Report 10153138 (Version 4)
Quarter: 2014Q4

REPORT INFORMATION
  Report Type: Spontaneous
  Country: US (occurrence: US)
  Receive Date: 20140505
  Receipt Date: 20141112
  Transmission Date: 20150528
  Serious: Yes (Hospitalization, Other)
  Sender: FDA-Public Use
  Company Number: US-GILEAD-2014-0101345

PATIENT
  Age: 62 Year
  Sex: Male
  Weight: 80.27 kg

DRUGS (3)
  1. ROYAL JELLY [Concomitant]
     Active Substance: ROYAL JELLY
  2. RIBAVIRIN. [Suspect]
     Active Substance: RIBAVIRIN
     Indication: HEPATITIS C
     Dosage: 600 MG, QD
     Route: 065
     Dates: start: 20140214, end: 20140722
  3. SOVALDI [Suspect]
     Active Substance: SOFOSBUVIR
     Indication: HEPATITIS C
     Dosage: 400 MG, QD
     Route: 048
     Dates: start: 20140214, end: 20140722

REACTIONS (19)
  - Asterixis [Unknown]
  - Pain [Unknown]
  - Urinary incontinence [Unknown]
  - Ataxia [Not Recovered/Not Resolved]
  - Diarrhoea [Unknown]
  - Hypotension [Unknown]
  - Rectal haemorrhage [Unknown]
  - Haematemesis [Unknown]
  - Hepatic cirrhosis [Unknown]
  - Fatigue [Not Recovered/Not Resolved]
  - Unevaluable event [Unknown]
  - Bradycardia [Unknown]
  - Aphasia [Not Recovered/Not Resolved]
  - Faecal incontinence [Unknown]
  - Fall [Unknown]
  - Encephalopathy [Not Recovered/Not Resolved]
  - Confusional state [Unknown]
  - Insomnia [Unknown]
  - Asthenia [Unknown]

NARRATIVE: CASE EVENT DATE: 20140424
